FAERS Safety Report 14108129 (Version 1)
Quarter: 2017Q4

REPORT INFORMATION
  Report Type: Spontaneous
  Country: US (occurrence: US)
  Receive Date: 20171019
  Receipt Date: 20171019
  Transmission Date: 20180321
  Serious: Yes (Hospitalization, Other)
  Sender: FDA-Public Use
  Company Number: US-UPSHER-SMITH LABORATORIES, INC.-2017USL00252

PATIENT
  Sex: Male

DRUGS (18)
  1. AMIODARONE HYDROCHLORIDE (SANDOZ) [Suspect]
     Active Substance: AMIODARONE HYDROCHLORIDE
     Indication: CARDIAC FAILURE CONGESTIVE
     Dosage: 200 MG, UNK
     Route: 048
     Dates: start: 2005, end: 201510
  2. AMIODARONE HYDROCHLORIDE (BARR) [Suspect]
     Active Substance: AMIODARONE HYDROCHLORIDE
     Indication: CARDIAC FAILURE CONGESTIVE
     Dosage: 200 MG, UNK
     Route: 048
     Dates: start: 2005, end: 201510
  3. AMIODARONE HYDROCHLORIDE (TARO) [Suspect]
     Active Substance: AMIODARONE HYDROCHLORIDE
     Indication: CARDIAC FAILURE CONGESTIVE
     Dosage: 200 MG, UNK
     Route: 048
     Dates: start: 2005, end: 201510
  4. AMIODARONE HYDROCHLORIDE (EON) [Suspect]
     Active Substance: AMIODARONE HYDROCHLORIDE
     Indication: ARRHYTHMIA
  5. AMIODARONE HYDROCHLORIDE (SANDOZ) [Suspect]
     Active Substance: AMIODARONE HYDROCHLORIDE
     Indication: ARRHYTHMIA
  6. AMIODARONE HYDROCHLORIDE (TEVA) [Suspect]
     Active Substance: AMIODARONE HYDROCHLORIDE
     Indication: CARDIAC FAILURE CONGESTIVE
     Dosage: 200 MG, UNK
     Route: 048
     Dates: start: 2005, end: 201510
  7. AMIODARONE HYDROCHLORIDE (ZYDUS) [Suspect]
     Active Substance: AMIODARONE HYDROCHLORIDE
     Indication: ARRHYTHMIA
  8. AMIODARONE HYDROCHLORIDE (MAYNE) [Suspect]
     Active Substance: AMIODARONE HYDROCHLORIDE
     Indication: CARDIAC FAILURE CONGESTIVE
     Dosage: 200 MG, UNK
     Route: 048
     Dates: start: 2005, end: 201510
  9. AMIODARONE HYDROCHLORIDE (ZYDUS) [Suspect]
     Active Substance: AMIODARONE HYDROCHLORIDE
     Indication: CARDIAC FAILURE CONGESTIVE
     Dosage: 200 MG, UNK
     Route: 048
     Dates: start: 2005, end: 201510
  10. AMIODARONE HYDROCHLORIDE. [Suspect]
     Active Substance: AMIODARONE HYDROCHLORIDE
     Indication: CARDIAC FAILURE CONGESTIVE
     Dosage: 200 MG, UNK
     Route: 048
     Dates: start: 2005, end: 201510
  11. AMIODARONE HYDROCHLORIDE(EON) [Suspect]
     Active Substance: AMIODARONE HYDROCHLORIDE
     Indication: CARDIAC FAILURE CONGESTIVE
     Dosage: 200 MG, UNK
     Route: 048
     Dates: start: 2005, end: 201510
  12. AMIODARONE HYDROCHLORIDE (TEVA) [Suspect]
     Active Substance: AMIODARONE HYDROCHLORIDE
     Indication: ARRHYTHMIA
  13. AMIODARONE HYDROCHLORIDE (PAR) [Suspect]
     Active Substance: AMIODARONE HYDROCHLORIDE
     Indication: CARDIAC FAILURE CONGESTIVE
     Dosage: 200 MG, UNK
     Route: 048
     Dates: start: 2005, end: 201510
  14. AMIODARONE HYDROCHLORIDE (BARR) [Suspect]
     Active Substance: AMIODARONE HYDROCHLORIDE
     Indication: ARRHYTHMIA
  15. AMIODARONE HYDROCHLORIDE (MAYNE) [Suspect]
     Active Substance: AMIODARONE HYDROCHLORIDE
     Indication: ARRHYTHMIA
  16. AMIODARONE HYDROCHLORIDE. [Suspect]
     Active Substance: AMIODARONE HYDROCHLORIDE
     Indication: ARRHYTHMIA
  17. AMIODARONE HYDROCHLORIDE (PAR) [Suspect]
     Active Substance: AMIODARONE HYDROCHLORIDE
     Indication: ARRHYTHMIA
  18. AMIODARONE HYDROCHLORIDE (TARO) [Suspect]
     Active Substance: AMIODARONE HYDROCHLORIDE
     Indication: ARRHYTHMIA

REACTIONS (12)
  - Dyspnoea [Unknown]
  - Acute pulmonary oedema [Unknown]
  - Off label use [Recovered/Resolved]
  - Cardiac failure congestive [Unknown]
  - Arrhythmia [Unknown]
  - Visual impairment [Unknown]
  - Cough [Unknown]
  - Pneumonia [Unknown]
  - Pulmonary fibrosis [Unknown]
  - Toxicity to various agents [Unknown]
  - Fatigue [Unknown]
  - Heart rate increased [Unknown]

NARRATIVE: CASE EVENT DATE: 2005
